FAERS Safety Report 10050428 (Version 1)
Quarter: 2014Q2

REPORT INFORMATION
  Report Type: Spontaneous
  Country: BE (occurrence: BE)
  Receive Date: 20140401
  Receipt Date: 20140401
  Transmission Date: 20141212
  Serious: Yes (Hospitalization)
  Sender: FDA-Public Use
  Company Number: BE-DSJP-DSE-2014-103017

PATIENT
  Sex: 0

DRUGS (2)
  1. FORZATEN 40 MG/ 10 MG [Suspect]
     Indication: HYPERTENSION
     Dosage: 40/10, QD
     Route: 048
     Dates: start: 20091205, end: 20140121
  2. ATORVASTATIN [Concomitant]
     Indication: HYPERLIPIDAEMIA
     Dosage: 40 MG, QD
     Dates: start: 20070315

REACTIONS (2)
  - Dehydration [Recovering/Resolving]
  - Diarrhoea [Recovering/Resolving]
